FAERS Safety Report 4439678-5 (Version None)
Quarter: 2004Q3

REPORT INFORMATION
  Report Type: 
  Country: None (occurrence: None)
  Receive Date: 20040902
  Receipt Date: 20040728
  Transmission Date: 20050211
  Serious: Yes (Hospitalization, Other)
  Sender: FDA-Public Use
  Company Number: 200417574GDDC

PATIENT
  Age: 68 Year
  Sex: Male

DRUGS (2)
  1. METFORMIN HCL [Suspect]
     Indication: DIABETES MELLITUS
     Route: 048
  2. GLIBENCLAMIDE [Suspect]
     Indication: DIABETES MELLITUS

REACTIONS (9)
  - ASTHENIA [None]
  - CEREBROVASCULAR ACCIDENT [None]
  - CLONUS [None]
  - DIFFICULTY IN WALKING [None]
  - FALL [None]
  - MYELOPATHY [None]
  - PARAPARESIS [None]
  - VITAMIN B12 DEFICIENCY [None]
  - WHITE BLOOD CELL COUNT DECREASED [None]
